FAERS Safety Report 9800047 (Version 2)
Quarter: 2014Q1

REPORT INFORMATION
  Report Type: Spontaneous
  Country: US (occurrence: US)
  Receive Date: 20140106
  Receipt Date: 20140106
  Transmission Date: 20141002
  Serious: Yes (Hospitalization)
  Sender: FDA-Public Use
  Company Number: US-GILEAD-2010-0032158

PATIENT
  Age: 75 Year
  Sex: Male

DRUGS (17)
  1. LETAIRIS [Suspect]
     Indication: PULMONARY ARTERIAL HYPERTENSION
     Route: 048
     Dates: start: 20100818
  2. SILDENAFIL [Concomitant]
  3. COUMADIN [Concomitant]
  4. NITROGLYCERIN [Concomitant]
  5. ALLOPURINOL [Concomitant]
  6. BUMEX [Concomitant]
  7. BACTRIM [Concomitant]
  8. LEUCOVORIN [Concomitant]
  9. PREDNISONE [Concomitant]
  10. FLUTICASONE [Concomitant]
  11. ALLEGRA [Concomitant]
  12. LANTUS [Concomitant]
  13. SYMBICORT [Concomitant]
  14. MULTIVITAMIN [Concomitant]
  15. FISH OIL [Concomitant]
  16. ASPIRIN [Concomitant]
  17. POTASSIUM CHLORIDE [Concomitant]

REACTIONS (1)
  - Dyspnoea [Not Recovered/Not Resolved]
